FAERS Safety Report 13153915 (Version 2)
Quarter: 2017Q1

REPORT INFORMATION
  Report Type: Spontaneous
  Country: JP (occurrence: JP)
  Receive Date: 20170126
  Receipt Date: 20170202
  Transmission Date: 20170428
  Serious: No
  Sender: FDA-Public Use
  Company Number: JP-TAKEDA-2017TEU000162

PATIENT

DRUGS (1)
  1. TACHOSIL [Suspect]
     Active Substance: FIBRINOGEN HUMAN\THROMBIN HUMAN
     Indication: LIVER OPERATION
     Dosage: UNK
     Route: 061
     Dates: start: 20161111, end: 20161111

REACTIONS (1)
  - Hepatitis B virus test positive [Unknown]
